FAERS Safety Report 10005001 (Version 2)
Quarter: 2014Q1

REPORT INFORMATION
  Report Type: Spontaneous
  Country: US (occurrence: US)
  Receive Date: 20140312
  Receipt Date: 20140312
  Transmission Date: 20141002
  Serious: No
  Sender: FDA-Public Use
  Company Number: US-INCYTE CORPORATION-2013IN001670

PATIENT
  Age: 83 Year
  Sex: Female

DRUGS (14)
  1. JAKAFI [Suspect]
     Indication: MYELOFIBROSIS
     Dosage: 10 MG, BID
     Route: 048
     Dates: start: 20130525
  2. AMIODARONE [Concomitant]
  3. SERTRALINE [Concomitant]
  4. TEMAZEPAM [Concomitant]
  5. HYDROCODONE [Concomitant]
  6. LEVOTHYROXINE [Concomitant]
  7. PANTOPRAZOLE [Concomitant]
  8. ASPIRIN [Concomitant]
     Dosage: 81 MG, UNK
  9. COLACE [Concomitant]
  10. VESICARE [Concomitant]
  11. MULTIVITAMINS [Concomitant]
  12. FOLIC ACID [Concomitant]
  13. VITAMIN A                          /00056001/ [Concomitant]
  14. VITAMIN C                          /00008001/ [Concomitant]

REACTIONS (4)
  - Flatulence [Unknown]
  - Decreased appetite [Unknown]
  - Nausea [Unknown]
  - Constipation [Unknown]
